FAERS Safety Report 6379494-0 (Version None)
Quarter: 2009Q3

REPORT INFORMATION
  Report Type: 
  Country: None (occurrence: None)
  Receive Date: 20090923
  Receipt Date: 20090923
  Transmission Date: 20100115
  Serious: No
  Sender: FDA-Public Use
  Company Number: None

PATIENT
  Age: 57 Year
  Sex: Male
  Weight: 86.2 kg

DRUGS (1)
  1. DASATINIB [Suspect]
     Indication: CHRONIC MYELOID LEUKAEMIA
     Dosage: 50 MG BID PO
     Route: 048
     Dates: start: 20090325

REACTIONS (1)
  - PANCYTOPENIA [None]
